FAERS Safety Report 9686801 (Version 1)
Quarter: 2013Q4

REPORT INFORMATION
  Report Type: Spontaneous
  Country: JP (occurrence: JP)
  Receive Date: 20131113
  Receipt Date: 20131113
  Transmission Date: 20140711
  Serious: Yes (Other)
  Sender: FDA-Public Use
  Company Number: JP-BRISTOL-MYERS SQUIBB COMPANY-19803626

PATIENT
  Age: 65 Year
  Sex: Male

DRUGS (3)
  1. METGLUCO [Suspect]
     Indication: DIABETES MELLITUS
     Route: 048
  2. VILDAGLIPTIN [Concomitant]
     Route: 048
  3. MICARDIS [Concomitant]
     Route: 048

REACTIONS (1)
  - Blood creatine phosphokinase increased [Unknown]
